FAERS Safety Report 5026996-5 (Version None)
Quarter: 2006Q2

REPORT INFORMATION
  Report Type: 
  Country: None (occurrence: None)
  Receive Date: 20060609
  Receipt Date: 20060529
  Transmission Date: 20061013
  Serious: Yes (Other)
  Sender: FDA-Public Use
  Company Number: 2006063864

PATIENT
  Age: 46 Year
  Sex: Female

DRUGS (5)
  1. LYRICA [Suspect]
     Indication: EPILEPSY
     Dosage: 150 MG (75 MG 2 IN 1 D) ORAL
     Route: 048
     Dates: start: 20060201, end: 20060212
  2. PHENOBARBITAL TAB [Concomitant]
  3. DEPAKENE [Concomitant]
  4. LAMICTAL [Concomitant]
  5. VALIUM [Concomitant]

REACTIONS (4)
  - CONDITION AGGRAVATED [None]
  - EPILEPSY [None]
  - FALL [None]
  - INJURY [None]
